FAERS Safety Report 26062689 (Version 6)
Quarter: 2025Q4

REPORT INFORMATION
  Report Type: Spontaneous
  Country: US (occurrence: US)
  Receive Date: 20251119
  Receipt Date: 20251204
  Transmission Date: 20260118
  Serious: Yes (Hospitalization)
  Sender: KARYOPHARM THERAPEUTICS
  Company Number: US-KARYOPHARM-2025KPT100964

PATIENT

DRUGS (30)
  1. SELINEXOR [Suspect]
     Active Substance: SELINEXOR
     Indication: Plasma cell myeloma
     Dosage: 40 MG TWICE WEEKLY
     Route: 048
     Dates: start: 2024, end: 202511
  2. SELINEXOR [Suspect]
     Active Substance: SELINEXOR
     Dosage: TWICE DAILY
     Dates: start: 20251110, end: 20251110
  3. SELINEXOR [Suspect]
     Active Substance: SELINEXOR
     Dosage: 80MG TWICE A DAY ON DAYS 1 AND 3 OF EACH WEEK
     Route: 048
     Dates: start: 2025
  4. CEPHALEXIN [Concomitant]
     Active Substance: CEPHALEXIN
  5. TRIAMCINOLONE [Concomitant]
     Active Substance: TRIAMCINOLONE
  6. DOXYCYCLINE [Concomitant]
     Active Substance: DOXYCYCLINE
  7. BACTRIM DS [Concomitant]
     Active Substance: SULFAMETHOXAZOLE\TRIMETHOPRIM
  8. DEXAMETHASONE [Concomitant]
     Active Substance: DEXAMETHASONE
  9. LEVOTHYROXINE [Concomitant]
     Active Substance: LEVOTHYROXINE
  10. LASIX [Concomitant]
     Active Substance: FUROSEMIDE
  11. ELIQUIS [Concomitant]
     Active Substance: APIXABAN
  12. VENLAFAXINE [Concomitant]
     Active Substance: VENLAFAXINE HYDROCHLORIDE
  13. METOPROLOL SUCCINATE [Concomitant]
     Active Substance: METOPROLOL SUCCINATE
  14. LYRICA [Concomitant]
     Active Substance: PREGABALIN
  15. MEGESTROL ACETATE [Concomitant]
     Active Substance: MEGESTROL ACETATE
  16. POMALYST [Concomitant]
     Active Substance: POMALIDOMIDE
  17. LOKELMA [SODIUM ZIRCONIUM CYCLOSILICATE] [Concomitant]
  18. ACYCLOVIR [Concomitant]
     Active Substance: ACYCLOVIR
  19. CALCIPOTRIENE [Concomitant]
     Active Substance: CALCIPOTRIENE
  20. PRAVASTATIN [Concomitant]
     Active Substance: PRAVASTATIN
  21. VENLAFAXINE [Concomitant]
     Active Substance: VENLAFAXINE HYDROCHLORIDE
  22. CIPROFLOXACIN [Concomitant]
     Active Substance: CIPROFLOXACIN
  23. COLESTID [Concomitant]
     Active Substance: COLESTIPOL HYDROCHLORIDE
  24. DESONIDE [Concomitant]
     Active Substance: DESONIDE
  25. OMEPRAZOLE [Concomitant]
     Active Substance: OMEPRAZOLE
  26. PENTOXIFYLLINE [Concomitant]
     Active Substance: PENTOXIFYLLINE
  27. SILDENAFIL [Concomitant]
     Active Substance: SILDENAFIL
  28. TIZANIDINE [Concomitant]
     Active Substance: TIZANIDINE
  29. DOXYCYCLINE [Concomitant]
     Active Substance: DOXYCYCLINE
  30. PERIDEX [CHLORHEXIDINE GLUCONATE] [Concomitant]

REACTIONS (5)
  - Pneumonitis [Recovering/Resolving]
  - Pulmonary oedema [Recovering/Resolving]
  - Sepsis [Unknown]
  - Product dispensing error [Unknown]
  - Overdose [Unknown]

NARRATIVE: CASE EVENT DATE: 20250101
